FAERS Safety Report 25864651 (Version 3)
Quarter: 2025Q4

REPORT INFORMATION
  Report Type: Spontaneous
  Country: US (occurrence: US)
  Receive Date: 20250930
  Receipt Date: 20251117
  Transmission Date: 20260117
  Serious: No
  Sender: PFIZER
  Company Number: US-PFIZER INC-PV202500102238

PATIENT
  Age: 9 Year
  Sex: Male
  Weight: 28.8 kg

DRUGS (7)
  1. GENOTROPIN [Suspect]
     Active Substance: SOMATROPIN
     Indication: Hypopituitarism
     Dosage: 1.2 MG, 6X/WK (EQUALS 0.30MG/KG/WK)
     Route: 058
     Dates: start: 20240220
  2. GENOTROPIN [Suspect]
     Active Substance: SOMATROPIN
     Indication: Growth hormone deficiency
     Dosage: 1.3MG (ALTERNATE 1.2MG AND 1.4MG) 6X/WK (EQUALS 0.31MG/KG/WK)
     Route: 058
     Dates: start: 20240528
  3. GENOTROPIN [Suspect]
     Active Substance: SOMATROPIN
     Dosage: 1.3MG (ALTERNATE 1.2MG AND 1.4MG) 6X/WK (EQUALS 0.31MG/KG/WK)
     Route: 058
     Dates: start: 20240528
  4. GENOTROPIN [Suspect]
     Active Substance: SOMATROPIN
     Dosage: 1.4 MG, 6X/WK (EQUALS 0.32MG/KG/WK)
     Route: 058
     Dates: start: 20240925
  5. GENOTROPIN [Suspect]
     Active Substance: SOMATROPIN
     Dosage: 1.5 (ALTERNATING 1.4/1.6) MG 6X/WK (EQUALS 0.32MG/KG/WK)
     Route: 058
     Dates: start: 20250308
  6. GENOTROPIN [Suspect]
     Active Substance: SOMATROPIN
     Dosage: 1.5 (ALTERNATING 1.4/1.6) MG 6X/WK (EQUALS 0.32MG/KG/WK)
     Route: 058
     Dates: start: 20250308
  7. GENOTROPIN [Suspect]
     Active Substance: SOMATROPIN
     Dosage: 1.6 MG/DAY 6 DAYS/WEEK (EQUALS 0.33MG/KG/WK)
     Route: 058
     Dates: start: 20250806

REACTIONS (3)
  - Device issue [Unknown]
  - Device breakage [Unknown]
  - Drug dose omission by device [Unknown]
